FAERS Safety Report 25143846 (Version 1)
Quarter: 2025Q2

REPORT INFORMATION
  Report Type: Spontaneous
  Country: RU (occurrence: RU)
  Receive Date: 20250401
  Receipt Date: 20250401
  Transmission Date: 20250717
  Serious: Yes (Other)
  Sender: ORGANON
  Company Number: RU-ORGANON-O2503RUS002968

PATIENT
  Age: 35 Year
  Sex: Female

DRUGS (1)
  1. ETONOGESTREL [Suspect]
     Active Substance: ETONOGESTREL
     Route: 059

REACTIONS (1)
  - Abnormal uterine bleeding [Recovered/Resolved]
